FAERS Safety Report 5639071-3 (Version None)
Quarter: 2008Q1

REPORT INFORMATION
  Report Type: 
  Country: None (occurrence: None)
  Receive Date: 20080222
  Receipt Date: 20080108
  Transmission Date: 20080703
  Serious: Yes (Life-Threatening)
  Sender: FDA-Public Use
  Company Number: IDA-00004

PATIENT
  Age: 60 Year
  Sex: Male

DRUGS (12)
  1. INDERAL [Suspect]
     Indication: ACUTE CORONARY SYNDROME
     Dates: start: 20080107, end: 20080110
  2. ADZ6140, UNK. STRENGTH, UNK. MANUFACTURER [Suspect]
     Dosage: 90 MG, BID, PO
     Route: 048
     Dates: start: 20080107
  3. CLONAZEPAM [Concomitant]
  4. CAPTOPRIL [Concomitant]
  5. OMEPRAZOLE [Concomitant]
  6. SIMVASTATIN [Concomitant]
  7. N-ACETYLCYSTEINE [Concomitant]
  8. METOCLOPRAMIDE [Concomitant]
  9. DIPIRONA (METAMIZOLE) [Concomitant]
  10. ENOXAPARIN [Concomitant]
  11. ASPIRIN [Concomitant]
  12. TIROFIBAN [Concomitant]

REACTIONS (2)
  - ATRIOVENTRICULAR BLOCK [None]
  - FATIGUE [None]
